FAERS Safety Report 4386366-X (Version None)
Quarter: 2004Q2

REPORT INFORMATION
  Report Type: 
  Country: None (occurrence: None)
  Receive Date: 20040623
  Receipt Date: 20040623
  Transmission Date: 20050107
  Serious: Yes (Hospitalization)
  Sender: FDA-Public Use
  Company Number: US-JNJFOC-20040304406

PATIENT
  Age: 87 Year
  Sex: Female
  Weight: 86.637 kg

DRUGS (13)
  1. DITROPAN XL [Suspect]
     Indication: STRESS INCONTINENCE
     Dosage: 5 MG, 1 IN 1 DAY, ORAL
     Route: 048
  2. CARDURA [Concomitant]
  3. ARICEPT [Concomitant]
  4. MAXZIDE [Concomitant]
  5. LORCET-HD [Concomitant]
  6. OXYCONTIN [Concomitant]
  7. ASPIRIN [Concomitant]
  8. PREMARIN [Concomitant]
  9. COUAMDIN (WARFARIN SODIUM) [Concomitant]
  10. WELLBUTRIN XL (BUPROPION HYDROCHLORIDE) [Concomitant]
  11. PHENOBARBITAL TAB [Concomitant]
  12. IRON (IRON) [Concomitant]
  13. TYLENOL [Concomitant]

REACTIONS (3)
  - ARTERIOSPASM CORONARY [None]
  - MYOCARDIAL INFARCTION [None]
  - POST PROCEDURAL COMPLICATION [None]
